FAERS Safety Report 11680234 (Version 2)
Quarter: 2015Q4

REPORT INFORMATION
  Report Type: Spontaneous
  Country: US (occurrence: US)
  Receive Date: 20151027
  Receipt Date: 20151104
  Transmission Date: 20160304
  Serious: No
  Sender: FDA-Public Use
  Company Number: US-ELI_LILLY_AND_COMPANY-US201004005670

PATIENT
  Age: 82 Year
  Sex: Female

DRUGS (1)
  1. FORTEO [Suspect]
     Active Substance: TERIPARATIDE
     Indication: OSTEOPOROSIS
     Dosage: 20 UG, UNK
     Route: 058
     Dates: start: 2009

REACTIONS (5)
  - Rash generalised [Recovering/Resolving]
  - Back pain [Unknown]
  - Bone pain [Unknown]
  - Pruritus [Unknown]
  - Wrist fracture [Unknown]

NARRATIVE: CASE EVENT DATE: 2010
